FAERS Safety Report 4810523-9 (Version None)
Quarter: 2005Q4

REPORT INFORMATION
  Report Type: 
  Country: None (occurrence: None)
  Receive Date: 20051025
  Receipt Date: 20051025
  Transmission Date: 20060501
  Serious: Yes (Other)
  Sender: FDA-Public Use
  Company Number: None

PATIENT
  Age: 79 Year
  Sex: Male
  Weight: 127.9 kg

DRUGS (8)
  1. TERAZOSIN HCL [Suspect]
  2. FOSINOPRIL SODIUM [Concomitant]
  3. ALBUTEROL SULFATE AND IPRATROPIUM BROMIDE [Concomitant]
  4. ASPIRIN [Concomitant]
  5. ALPRAZOLAM [Concomitant]
  6. SIMVASTATIN [Concomitant]
  7. THIAMINE HCL [Concomitant]
  8. LANOXIN [Concomitant]

REACTIONS (1)
  - DIZZINESS [None]
